FAERS Safety Report 8737449 (Version 4)
Quarter: 2013Q3

REPORT INFORMATION
  Report Type: Report from Study
  Country: JP (occurrence: JP)
  Receive Date: 20120822
  Receipt Date: 20130912
  Transmission Date: 20140515
  Serious: Yes (Hospitalization, Other)
  Sender: FDA-Public Use
  Company Number: JP-VERTEX PHARMACEUTICAL INC.-2012-019709

PATIENT
  Age: 71 Year
  Sex: Female

DRUGS (14)
  1. VX-950 (TELAPREVIR) [Suspect]
     Indication: CHRONIC HEPATITIS C
     Dosage: 1500 MG, QD
     Route: 048
     Dates: start: 20120606, end: 20120717
  2. REBETOL [Suspect]
     Indication: CHRONIC HEPATITIS C
     Dosage: 600 MG, QD
     Route: 048
     Dates: start: 20120606, end: 20120702
  3. REBETOL [Suspect]
     Dosage: 400 MG, QD
     Route: 048
     Dates: start: 20120703, end: 20120717
  4. PEGINTRON [Suspect]
     Indication: CHRONIC HEPATITIS C
     Dosage: 80 ?G, QW
     Route: 058
     Dates: start: 20120606, end: 20120710
  5. URSO [Concomitant]
     Dosage: 300 MG, QD
     Route: 048
     Dates: end: 20120620
  6. DIOVAN [Concomitant]
     Dosage: 80 MG, QD
     Route: 048
     Dates: end: 20120620
  7. PREMINENT [Concomitant]
     Dosage: 1 DF, QD
     Route: 048
     Dates: end: 20120620
  8. PREMINENT [Concomitant]
     Dosage: 1 DF, QD
     Route: 048
     Dates: start: 20121016
  9. ZYLORIC [Concomitant]
     Dosage: 200 MG, QD
     Route: 048
     Dates: start: 20120611, end: 20120801
  10. GASTER D [Concomitant]
     Dosage: 20 MG, UNK
     Route: 048
     Dates: start: 20120611
  11. MUCOSTA [Concomitant]
     Dosage: 300 MG, QD
     Route: 048
     Dates: start: 20120611
  12. MARZULENE [Concomitant]
     Dosage: 2.01 G, QD
     Route: 048
     Dates: start: 20120611
  13. DOGMATYL [Concomitant]
     Dosage: 150 MG, QD
     Route: 048
     Dates: start: 20120611
  14. LIPITOR [Concomitant]
     Dosage: 10 MG, QD
     Route: 048
     Dates: start: 20120614, end: 20120620

REACTIONS (4)
  - White blood cell count decreased [Recovered/Resolved]
  - White blood cell count decreased [Not Recovered/Not Resolved]
  - Blood urea increased [Unknown]
  - Haemoglobin decreased [Recovered/Resolved]
